FAERS Safety Report 10265600 (Version 15)
Quarter: 2016Q3

REPORT INFORMATION
  Report Type: Report from Study
  Country: GB (occurrence: GB)
  Receive Date: 20140624
  Receipt Date: 20160708
  Transmission Date: 20161109
  Serious: Yes (Death, Life-Threatening, Hospitalization, Other)
  Sender: FDA-Public Use
  Company Number: ADR-2014-01062

PATIENT
  Age: 39 Year
  Sex: Male

DRUGS (41)
  1. BACLOFEN. [Concomitant]
     Active Substance: BACLOFEN
     Dosage: 248.7200012 MCG/DAY
     Route: 037
     Dates: start: 20140204, end: 20140206
  2. BACLOFEN. [Suspect]
     Active Substance: BACLOFEN
     Dosage: 207.44 MCG/DAY
     Route: 037
     Dates: start: 20140207
  3. RAMIPRIL. [Suspect]
     Active Substance: RAMIPRIL
     Dosage: 2.5 MG
     Route: 048
     Dates: start: 20140113
  4. SERTRALINE [Suspect]
     Active Substance: SERTRALINE HYDROCHLORIDE
     Route: 048
     Dates: start: 20121210, end: 20140101
  5. BACLOFEN. [Suspect]
     Active Substance: BACLOFEN
     Route: 065
     Dates: start: 20140128
  6. LIORESAL [Suspect]
     Active Substance: BACLOFEN
     Route: 037
  7. BACLOFEN. [Suspect]
     Active Substance: BACLOFEN
     Dosage: 227.52 MCG/DAY
     Route: 037
     Dates: start: 20140225, end: 20140226
  8. BACLOFEN. [Suspect]
     Active Substance: BACLOFEN
     Dosage: 274.29 MCG/DAY
     Route: 037
     Dates: start: 20140311
  9. AMLODOPINE [Suspect]
     Active Substance: AMLODIPINE BESYLATE
     Route: 048
     Dates: start: 20120705
  10. IBUPROFEN. [Suspect]
     Active Substance: IBUPROFEN
     Route: 048
     Dates: start: 20140109
  11. SERTRALINE [Suspect]
     Active Substance: SERTRALINE HYDROCHLORIDE
     Route: 065
     Dates: start: 20140207, end: 20140226
  12. LIORESAL [Suspect]
     Active Substance: BACLOFEN
     Route: 037
  13. PARACETAMOL [Suspect]
     Active Substance: ACETAMINOPHEN
     Route: 048
     Dates: start: 20121112
  14. MIRTAZAPINE. [Suspect]
     Active Substance: MIRTAZAPINE
     Route: 048
     Dates: start: 20140522
  15. BACLOFEN. [Concomitant]
     Active Substance: BACLOFEN
     Dosage: 143.94 MCG/DAY
     Route: 037
     Dates: start: 20140121, end: 20140122
  16. BACLOFEN. [Suspect]
     Active Substance: BACLOFEN
     Route: 048
     Dates: start: 20140120, end: 20140123
  17. METOPROLOL. [Suspect]
     Active Substance: METOPROLOL
     Route: 048
     Dates: start: 20120705
  18. PERINDOPRIL [Suspect]
     Active Substance: PERINDOPRIL
     Route: 048
     Dates: start: 20120705, end: 20140110
  19. SILDENAFIL. [Suspect]
     Active Substance: SILDENAFIL
     Route: 048
     Dates: start: 20130220
  20. BACLOFEN. [Concomitant]
     Active Substance: BACLOFEN
     Dosage: 297.42 MCG/DAY
     Route: 037
     Dates: start: 20140131, end: 20140203
  21. LIORESAL [Suspect]
     Active Substance: BACLOFEN
     Route: 037
  22. ZOPICLONE [Suspect]
     Active Substance: ZOPICLONE
     Dosage: 3.75 MG
     Route: 048
     Dates: start: 20130220
  23. VENLAFAXINE 25 MG TEVA [Suspect]
     Active Substance: VENLAFAXINE HYDROCHLORIDE
     Route: 048
     Dates: start: 20140226
  24. BACLOFEN. [Suspect]
     Active Substance: BACLOFEN
     Route: 065
     Dates: start: 20140131
  25. BACLOFEN. [Suspect]
     Active Substance: BACLOFEN
     Route: 048
     Dates: start: 20140311
  26. BACLOFEN. [Suspect]
     Active Substance: BACLOFEN
     Route: 048
     Dates: start: 20120801, end: 20140120
  27. BACLOFEN. [Suspect]
     Active Substance: BACLOFEN
     Route: 048
     Dates: start: 20140123, end: 20140128
  28. BACLOFEN. [Suspect]
     Active Substance: BACLOFEN
     Route: 048
     Dates: start: 20140128, end: 20140131
  29. BACLOFEN. [Suspect]
     Active Substance: BACLOFEN
     Route: 048
     Dates: start: 20140131
  30. BACLOFEN. [Suspect]
     Active Substance: BACLOFEN
     Route: 042
     Dates: start: 20140117, end: 20140119
  31. BACLOFEN. [Concomitant]
     Active Substance: BACLOFEN
     Dosage: 172.03 MCG/DAY
     Route: 037
     Dates: start: 20140122, end: 20140123
  32. BACLOFEN. [Concomitant]
     Active Substance: BACLOFEN
     Dosage: 207.44 MCG/DAY
     Route: 037
     Dates: start: 20140123, end: 20140127
  33. BACLOFEN. [Concomitant]
     Active Substance: BACLOFEN
     Route: 048
     Dates: start: 20120801
  34. BACLOFEN. [Suspect]
     Active Substance: BACLOFEN
     Route: 065
     Dates: start: 20140123
  35. LIORESAL [Suspect]
     Active Substance: BACLOFEN
     Route: 037
  36. LIORESAL [Suspect]
     Active Substance: BACLOFEN
     Dosage: 274.29 MCG/DAY)
     Route: 037
  37. CO-DYDRAMOL [Suspect]
     Active Substance: ACETAMINOPHEN\DIHYDROCODEINE
     Route: 048
     Dates: start: 20140109
  38. BACLOFEN. [Concomitant]
     Active Substance: BACLOFEN
     Dosage: 120.13 MCG/DAY
     Route: 037
     Dates: start: 20140120
  39. BACLOFEN. [Suspect]
     Active Substance: BACLOFEN
     Dosage: 249.98 MCG/DAY
     Route: 037
     Dates: start: 20140226, end: 20140311
  40. FLUCLOXACILLIN 2014/02/23 [Suspect]
     Active Substance: FLUCLOXACILLIN
     Route: 042
     Dates: start: 20140223, end: 20140226
  41. BACLOFEN. [Concomitant]
     Active Substance: BACLOFEN
     Dosage: 248.72 MCG/DAY
     Route: 037
     Dates: start: 20140128, end: 20140130

REACTIONS (50)
  - Anxiety [Unknown]
  - Conjunctival hyperaemia [Unknown]
  - Impaired healing [Unknown]
  - Alcohol abuse [Fatal]
  - Gamma-glutamyltransferase abnormal [Unknown]
  - Muscular weakness [Recovered/Resolved]
  - Fatigue [Recovered/Resolved]
  - Erectile dysfunction [Unknown]
  - Muscle spasticity [Unknown]
  - Macrophages increased [Unknown]
  - Adverse drug reaction [Unknown]
  - Gastritis [Recovered/Resolved]
  - Scratch [Unknown]
  - Wound dehiscence [Recovered/Resolved]
  - Malaise [Unknown]
  - Pulmonary oedema [Unknown]
  - Cough [Recovered/Resolved]
  - Onychomycosis [Unknown]
  - Implant site infection [Recovered/Resolved]
  - Fall [Unknown]
  - Cardiomegaly [Unknown]
  - Hepatic steatosis [Unknown]
  - Nausea [Recovered/Resolved]
  - Depression [Unknown]
  - Petechiae [Unknown]
  - Scar [Unknown]
  - Wound infection [Recovered/Resolved]
  - Alcohol poisoning [Fatal]
  - Pain in extremity [Unknown]
  - Diarrhoea [Recovered/Resolved]
  - Headache [Recovered/Resolved]
  - Neutrophil count increased [Unknown]
  - Stress [Recovered/Resolved]
  - Sudden death [Fatal]
  - Therapeutic response unexpected [Unknown]
  - Toxicity to various agents [Unknown]
  - Hypotonia [Recovered/Resolved]
  - Pulmonary congestion [Unknown]
  - Purulent discharge [Recovered/Resolved]
  - Mental disorder [Unknown]
  - Implant site extravasation [Recovered/Resolved]
  - Skin ulcer [Recovered/Resolved]
  - Blood ethanol increased [Unknown]
  - Condition aggravated [Fatal]
  - Injury [Recovered/Resolved]
  - Vomiting [Recovered/Resolved]
  - Intentional self-injury [Recovered/Resolved]
  - Accidental death [Fatal]
  - Therapeutic response decreased [Recovered/Resolved]
  - Upper respiratory tract infection [Recovered/Resolved]

NARRATIVE: CASE EVENT DATE: 20130220
